FAERS Safety Report 9212512 (Version 1)
Quarter: 2013Q2

REPORT INFORMATION
  Report Type: Spontaneous
  Country: US (occurrence: US)
  Receive Date: 20130405
  Receipt Date: 20130405
  Transmission Date: 20140414
  Serious: Yes (Other)
  Sender: FDA-Public Use
  Company Number: US-AMGEN-USASP2013022358

PATIENT
  Age: 79 Year
  Sex: Male
  Weight: 70.75 kg

DRUGS (12)
  1. PROCRIT [Suspect]
     Indication: RENAL FAILURE CHRONIC
     Dosage: UNK, ONCE A MONTH
     Route: 058
     Dates: start: 2009
  2. GLIPIZIDE [Concomitant]
     Dosage: UNK
  3. METOPROLOL [Concomitant]
     Dosage: UNK
  4. FUROSEMIDE [Concomitant]
     Dosage: UNK
  5. NIFEDIPINE [Concomitant]
     Dosage: UNK
  6. CALCITROL                          /00508501/ [Concomitant]
     Dosage: UNK
  7. LISINOPRIL [Concomitant]
     Dosage: UNK
  8. DOXAZOSIN [Concomitant]
     Dosage: UNK
  9. POTASSIUM [Concomitant]
     Dosage: UNK
  10. METFORMIN [Concomitant]
     Dosage: UNK
  11. OMEPRAZOLE [Concomitant]
     Dosage: UNK
  12. FERROUS SULPHATE                   /00023503/ [Concomitant]
     Dosage: UNK

REACTIONS (4)
  - Dyspnoea [Unknown]
  - Lethargy [Unknown]
  - Haemoglobin decreased [Not Recovered/Not Resolved]
  - Abnormal loss of weight [Unknown]
